FAERS Safety Report 9282217 (Version 2)
Quarter: 2013Q2

REPORT INFORMATION
  Report Type: Spontaneous
  Country: US (occurrence: US)
  Receive Date: 20130510
  Receipt Date: 20130604
  Transmission Date: 20140414
  Serious: No
  Sender: FDA-Public Use
  Company Number: US-PFIZER INC-2013141866

PATIENT
  Sex: 0

DRUGS (7)
  1. CIPROFLOXACIN [Suspect]
     Dosage: UNK
  2. FLAGYL [Suspect]
     Dosage: UNK
  3. INDERAL [Suspect]
     Dosage: UNK
  4. CALAN [Suspect]
     Dosage: UNK
  5. CODEINE [Suspect]
     Dosage: UNK
  6. LEVAQUIN [Suspect]
     Dosage: UNK
  7. BACTRIM [Suspect]
     Dosage: UNK

REACTIONS (1)
  - Drug hypersensitivity [Unknown]
